FAERS Safety Report 9562139 (Version 1)
Quarter: 2013Q3

REPORT INFORMATION
  Report Type: Spontaneous
  Country: CN (occurrence: CN)
  Receive Date: 20130927
  Receipt Date: 20130927
  Transmission Date: 20140515
  Serious: Yes (Death)
  Sender: FDA-Public Use
  Company Number: CN-SANOFI-AVENTIS-2013SA090783

PATIENT
  Age: 32 Year
  Sex: Female
  Weight: 51 kg

DRUGS (12)
  1. THYMOGLOBULIN [Suspect]
     Indication: APLASTIC ANAEMIA
     Route: 065
     Dates: start: 20130726, end: 20130730
  2. AMPHOTERICIN B [Concomitant]
     Indication: ANTI-INFECTIVE THERAPY
     Dates: start: 20130823, end: 20130828
  3. NORVANCOMYCIN HYDROCHLORIDE [Concomitant]
     Indication: ANTI-INFECTIVE THERAPY
     Dates: start: 20130817, end: 20130824
  4. MEROPENEM [Concomitant]
     Indication: ANTI-INFECTIVE THERAPY
     Dates: start: 20130817, end: 20130824
  5. METHYLPREDNISOLONE [Concomitant]
     Indication: ANTIINFLAMMATORY THERAPY
     Dates: start: 20130817, end: 20130819
  6. VORICONAZOLE [Concomitant]
     Indication: ANTIFUNGAL TREATMENT
     Dates: start: 20130817, end: 20130820
  7. TAZOCIN [Concomitant]
     Indication: ANTI-INFECTIVE THERAPY
     Dates: start: 20130823, end: 20130827
  8. TARGOCID [Concomitant]
     Indication: ANTI-INFECTIVE THERAPY
     Dates: start: 20130824, end: 20130828
  9. TIENAM [Concomitant]
     Indication: ANTI-INFECTIVE THERAPY
     Dates: start: 20130827, end: 20130828
  10. GRAN [Concomitant]
     Indication: NEUTROPHIL COUNT ABNORMAL
     Dates: start: 20130817, end: 20130828
  11. CYCLOSPORINE [Concomitant]
     Indication: IMMUNOSUPPRESSANT DRUG THERAPY
     Dates: start: 20130817, end: 20130822
  12. CYCLOSPORINE [Concomitant]
     Indication: IMMUNOSUPPRESSANT DRUG THERAPY
     Dates: start: 20130823, end: 20130825

REACTIONS (8)
  - Haemorrhage intracranial [Fatal]
  - Headache [Fatal]
  - Visual impairment [Fatal]
  - Loss of consciousness [Fatal]
  - Eye haemorrhage [Fatal]
  - Haematemesis [Unknown]
  - Haematochezia [Unknown]
  - Haematuria [Unknown]
